FAERS Safety Report 11515970 (Version 1)
Quarter: 2015Q3

REPORT INFORMATION
  Report Type: Spontaneous
  Country: US (occurrence: US)
  Receive Date: 20150916
  Receipt Date: 20150916
  Transmission Date: 20151125
  Serious: No
  Sender: FDA-Public Use
  Company Number: US-GLENMARK PHARMACEUTICALS INC, USA.-2015GMK014776

PATIENT

DRUGS (1)
  1. NORETHINDRONE TABLETS 0.35MG (AB2) [Suspect]
     Active Substance: NORETHINDRONE
     Indication: POLYCYSTIC OVARIES
     Dosage: 1 DF, OD
     Route: 048
     Dates: start: 201409, end: 20150311

REACTIONS (3)
  - Metrorrhagia [Unknown]
  - Product use issue [Unknown]
  - Product colour issue [Unknown]

NARRATIVE: CASE EVENT DATE: 201409
